FAERS Safety Report 24826921 (Version 1)
Quarter: 2025Q1

REPORT INFORMATION
  Report Type: Spontaneous
  Country: ES (occurrence: ES)
  Receive Date: 20250109
  Receipt Date: 20250109
  Transmission Date: 20250409
  Serious: Yes (Other)
  Sender: ALEXION PHARMACEUTICALS
  Company Number: None

PATIENT
  Age: 92 Year
  Weight: 58.1 kg

DRUGS (15)
  1. QUETIAPINE [Suspect]
     Active Substance: QUETIAPINE
     Indication: Persistent complex bereavement disorder
     Dosage: 25 MILLIGRAM, QD
  2. QUETIAPINE [Suspect]
     Active Substance: QUETIAPINE
     Dosage: 25 MILLIGRAM, QD
     Route: 048
  3. QUETIAPINE [Suspect]
     Active Substance: QUETIAPINE
     Dosage: 25 MILLIGRAM, QD
  4. QUETIAPINE [Suspect]
     Active Substance: QUETIAPINE
     Dosage: 25 MILLIGRAM, QD
     Route: 048
  5. LEVOSULPIRIDE [Suspect]
     Active Substance: LEVOSULPIRIDE
     Indication: Biliary dyspepsia
     Route: 048
  6. LEVOSULPIRIDE [Suspect]
     Active Substance: LEVOSULPIRIDE
  7. SERTRALINE [Concomitant]
     Active Substance: SERTRALINE HYDROCHLORIDE
  8. DAPAGLIFLOZIN [Concomitant]
     Active Substance: DAPAGLIFLOZIN
  9. BISOPROLOL [Concomitant]
     Active Substance: BISOPROLOL
  10. FUROSEMIDE [Concomitant]
     Active Substance: FUROSEMIDE
  11. SERETIDE [Concomitant]
     Active Substance: FLUTICASONE PROPIONATE\SALMETEROL XINAFOATE
  12. EDOXABAN TOSYLATE [Concomitant]
     Active Substance: EDOXABAN TOSYLATE
  13. MOVICOL [Concomitant]
     Active Substance: POLYETHYLENE GLYCOL 3350\POTASSIUM CHLORIDE\SODIUM BICARBONATE\SODIUM CHLORIDE
  14. ACETAMINOPHEN [Concomitant]
     Active Substance: ACETAMINOPHEN
  15. LANSOPRAZOLE [Concomitant]
     Active Substance: LANSOPRAZOLE

REACTIONS (4)
  - Hyperprolactinaemia [Unknown]
  - Hyponatraemia [Unknown]
  - Depressed level of consciousness [Recovered/Resolved]
  - Suicide attempt [Unknown]
